FAERS Safety Report 8976301 (Version 1)
Quarter: 2012Q4

REPORT INFORMATION
  Report Type: 
  Country: JP (occurrence: JP)
  Receive Date: 20121220
  Receipt Date: 20121220
  Transmission Date: 20130627
  Serious: Yes (Other)
  Sender: FDA-Public Use
  Company Number: JP-BAYER-2012-047696

PATIENT
  Age: 69 Year
  Sex: Male
  Weight: 73.92 kg

DRUGS (6)
  1. NEXAVAR [Suspect]
     Indication: RENAL CELL CARCINOMA
     Dosage: 400 mg, BID
     Route: 048
     Dates: start: 20100825, end: 20120406
  2. GOREI-SAN [Concomitant]
     Dosage: Daily dose 7.5 g
     Route: 048
     Dates: start: 20110304, end: 20120406
  3. FERROMIA [Concomitant]
     Dosage: Daily dose 100 mg
     Route: 048
     Dates: start: 20110902, end: 20120817
  4. ZYLORIC [Concomitant]
     Dosage: Daily dose 100 mg
     Route: 048
  5. MICARDIS [Concomitant]
     Dosage: Daily dose 40 mg
     Route: 048
  6. ATELEC [Concomitant]
     Dosage: Daily dose 10 mg
     Route: 048

REACTIONS (4)
  - Blood albumin decreased [Not Recovered/Not Resolved]
  - Blood cholinesterase decreased [Not Recovered/Not Resolved]
  - Anaemia [Recovered/Resolved]
  - Diarrhoea [Recovered/Resolved]
